FAERS Safety Report 7922585-0 (Version None)
Quarter: 2011Q4

REPORT INFORMATION
  Report Type: 
  Country: None (occurrence: None)
  Receive Date: 20111117
  Receipt Date: 20101116
  Transmission Date: 20120403
  Serious: No
  Sender: FDA-Public Use
  Company Number: US-ALLERGAN-1014836US

PATIENT
  Age: 69 Year
  Sex: Female

DRUGS (1)
  1. COMBIGAN [Suspect]
     Indication: GLAUCOMA
     Dosage: 1 GTT, BID
     Route: 047

REACTIONS (6)
  - DEHYDRATION [None]
  - PAIN IN EXTREMITY [None]
  - EYE IRRITATION [None]
  - EXPIRED DRUG ADMINISTERED [None]
  - EYE PAIN [None]
  - DIZZINESS [None]
